FAERS Safety Report 6012575-X (Version None)
Quarter: 2008Q4

REPORT INFORMATION
  Report Type: 
  Country: None (occurrence: None)
  Receive Date: 20081218
  Receipt Date: 20081208
  Transmission Date: 20090506
  Serious: Yes (Other)
  Sender: FDA-Public Use
  Company Number: DE-ALLERGAN-0815214US

PATIENT
  Sex: Female

DRUGS (1)
  1. COMBIGAN [Suspect]
     Indication: OPEN ANGLE GLAUCOMA
     Dosage: UNK, UNKNOWN
     Route: 047
     Dates: start: 20080101

REACTIONS (1)
  - IRIDOCYCLITIS [None]
